FAERS Safety Report 8179332-X (Version None)
Quarter: 2012Q1

REPORT INFORMATION
  Report Type: 
  Country: None (occurrence: None)
  Receive Date: 20120302
  Receipt Date: 20120224
  Transmission Date: 20120608
  Serious: Yes (Other)
  Sender: FDA-Public Use
  Company Number: CA-JNJFOC-20120113626

PATIENT
  Age: 60 Year
  Sex: Female

DRUGS (2)
  1. REMICADE [Suspect]
     Indication: SKIN DISORDER
     Dosage: APRIL -MAY
     Route: 042
     Dates: start: 20110101, end: 20111228
  2. ANTI-DEPRESSANT [Concomitant]

REACTIONS (1)
  - DEAFNESS [None]
